FAERS Safety Report 16289041 (Version 1)
Quarter: 2019Q2

REPORT INFORMATION
  Report Type: Spontaneous
  Country: US (occurrence: US)
  Receive Date: 20190402
  Receipt Date: 20190402
  Transmission Date: 20190711
  Serious: No
  Sender: FDA-Public Use
  Company Number: None

PATIENT
  Age: 68 Year
  Sex: Male
  Weight: 85 kg

DRUGS (1)
  1. HYDROMORPHONE [Suspect]
     Active Substance: HYDROMORPHONE
     Indication: PAIN
     Dosage: ?          OTHER DOSE:PCA;?
     Dates: start: 20190220, end: 20190222

REACTIONS (2)
  - Disorientation [None]
  - Hallucination [None]

NARRATIVE: CASE EVENT DATE: 20190220
